FAERS Safety Report 11645531 (Version 1)
Quarter: 2015Q4

REPORT INFORMATION
  Report Type: Spontaneous
  Country: US (occurrence: US)
  Receive Date: 20151020
  Receipt Date: 20151020
  Transmission Date: 20160304
  Serious: No
  Sender: FDA-Public Use
  Company Number: US-MEDA-2015100033

PATIENT
  Sex: Male

DRUGS (1)
  1. ASTELIN [Suspect]
     Active Substance: AZELASTINE HYDROCHLORIDE

REACTIONS (1)
  - Drug hypersensitivity [Unknown]
